FAERS Safety Report 24956133 (Version 4)
Quarter: 2025Q1

REPORT INFORMATION
  Report Type: Spontaneous
  Country: US (occurrence: US)
  Receive Date: 20250211
  Receipt Date: 20250313
  Transmission Date: 20250408
  Serious: No
  Sender: PFIZER
  Company Number: US-PFIZER INC-202400335350

PATIENT
  Age: 14 Year
  Sex: Female

DRUGS (2)
  1. GENOTROPIN [Suspect]
     Active Substance: SOMATROPIN
     Indication: Short stature
     Dosage: ALTERNATE EVERY OTHER DAY BETWEEN 1.2 MG AND 1.4 MG/DAY
  2. GENOTROPIN [Suspect]
     Active Substance: SOMATROPIN
     Dosage: ALTERNATE EVERY OTHER DAY BETWEEN 1.2 MG AND 1.4 MG/DAY

REACTIONS (2)
  - Product communication issue [Unknown]
  - Device defective [Unknown]
